FAERS Safety Report 21779730 (Version 1)
Quarter: 2022Q4

REPORT INFORMATION
  Report Type: Report from Study
  Country: US (occurrence: US)
  Receive Date: 20221226
  Receipt Date: 20221226
  Transmission Date: 20230113
  Serious: No
  Sender: FDA-Public Use
  Company Number: US-ABBVIE-4210897

PATIENT
  Sex: Male
  Weight: 145 kg

DRUGS (2)
  1. HUMIRA [Suspect]
     Active Substance: ADALIMUMAB
     Indication: Psoriasis
     Dosage: FORM STRENGTH: 40 MILLIGRAM
     Route: 058
     Dates: end: 202209
  2. ENBREL [Concomitant]
     Active Substance: ETANERCEPT
     Indication: Psoriasis

REACTIONS (2)
  - Psoriasis [Not Recovered/Not Resolved]
  - Therapeutic product effect decreased [Unknown]
